FAERS Safety Report 8305910-0 (Version None)
Quarter: 2012Q2

REPORT INFORMATION
  Report Type: 
  Country: None (occurrence: None)
  Receive Date: 20120423
  Receipt Date: 20120420
  Transmission Date: 20120825
  Serious: Yes (Hospitalization)
  Sender: FDA-Public Use
  Company Number: US-PFIZER INC-2012098620

PATIENT
  Sex: Female
  Weight: 68.027 kg

DRUGS (3)
  1. TYLENOL (CAPLET) [Concomitant]
     Indication: PAIN
     Dosage: 325 MG, UNK
  2. NORCO [Concomitant]
     Indication: PAIN
     Dosage: 10/325 MG, DAILY AT EVERY SIX TO EIGHT HOURS
     Route: 048
  3. PRISTIQ [Suspect]
     Indication: DEPRESSION
     Dosage: 50 MG, DAILY
     Dates: start: 20100101, end: 20120101

REACTIONS (1)
  - OSTEOARTHRITIS [None]
